FAERS Safety Report 12583512 (Version 6)
Quarter: 2017Q2

REPORT INFORMATION
  Report Type: Spontaneous
  Country: US (occurrence: US)
  Receive Date: 20160722
  Receipt Date: 20170406
  Transmission Date: 20170830
  Serious: Yes (Other)
  Sender: FDA-Public Use
  Company Number: US-TEVA-677842ACC

PATIENT
  Age: 28 Year
  Sex: Female

DRUGS (2)
  1. PRE-NATAL VITAMINS [Concomitant]
     Indication: NUTRITIONAL SUPPLEMENTATION
  2. PARAGARD T 380A [Suspect]
     Active Substance: COPPER
     Indication: CONTRACEPTION
     Dates: start: 20130728, end: 20160719

REACTIONS (7)
  - Menstruation delayed [Not Recovered/Not Resolved]
  - Uterine malposition [Not Recovered/Not Resolved]
  - Device dislocation [Not Recovered/Not Resolved]
  - Live birth [Unknown]
  - Pregnancy on contraceptive [Unknown]
  - Premature labour [Unknown]
  - Exposure during pregnancy [Unknown]

NARRATIVE: CASE EVENT DATE: 2016
